FAERS Safety Report 7950211-3 (Version None)
Quarter: 2011Q4

REPORT INFORMATION
  Report Type: 
  Country: None (occurrence: None)
  Receive Date: 20111130
  Receipt Date: 20111118
  Transmission Date: 20120403
  Serious: No
  Sender: FDA-Public Use
  Company Number: US-B.I. PHARMACEUTICALS,INC./RIDGEFIELD-2011-BP-24765BP

PATIENT
  Sex: Female

DRUGS (10)
  1. ALPRAZOLAM [Concomitant]
     Indication: ANXIETY
     Route: 048
  2. ZANTAC 150 [Suspect]
     Indication: DYSPEPSIA
     Dosage: 300 MG
     Route: 048
  3. LACTAID [Concomitant]
     Indication: LACTOSE INTOLERANCE
  4. LEVOTHYROXINE SODIUM [Concomitant]
     Indication: THYROID DISORDER
  5. ZANTAC 150 [Suspect]
     Indication: GASTROOESOPHAGEAL REFLUX DISEASE
  6. CITALOPRAM [Concomitant]
     Indication: DEPRESSION
  7. CITALOPRAM [Concomitant]
     Indication: SLEEP DISORDER
     Dosage: 40 MG
     Route: 048
  8. LEVOTHYROXINE SODIUM [Concomitant]
     Indication: HYPOTHYROIDISM
     Dosage: 100 MCG
     Route: 048
     Dates: start: 20000101
  9. MULTI-VITAMIN [Concomitant]
     Route: 048
  10. CITALOPRAM [Concomitant]
     Indication: ANXIETY

REACTIONS (2)
  - DRUG INEFFECTIVE [None]
  - INCORRECT DOSE ADMINISTERED [None]
